FAERS Safety Report 5565056-1 (Version None)
Quarter: 2007Q4

REPORT INFORMATION
  Report Type: 
  Country: None (occurrence: None)
  Receive Date: 20071212
  Receipt Date: 20071127
  Transmission Date: 20080405
  Serious: Yes (Life-Threatening)
  Sender: FDA-Public Use
  Company Number: 2007BM000113

PATIENT
  Age: 8 Year
  Sex: Female
  Weight: 33 kg

DRUGS (2)
  1. NAGLAZYME (GALSULFASE) SOLUTION (EXCEPT SYRUP), 1.0MG/ML (NAGALZYME GA [Suspect]
     Indication: MUCOPOLYSACCHARIDOSIS VI
     Dosage: 1 MG/KG;QW;IV
     Route: 042
     Dates: start: 20070625, end: 20070101
  2. BENADRYL [Concomitant]

REACTIONS (7)
  - ABDOMINAL PAIN [None]
  - APNOEA [None]
  - BRADYCARDIA [None]
  - CHOKING [None]
  - DYSPNOEA [None]
  - HYPERTHERMIA [None]
  - HYPOTHERMIA [None]
